FAERS Safety Report 20494204 (Version 2)
Quarter: 2022Q2

REPORT INFORMATION
  Report Type: Report from Study
  Country: GB (occurrence: GB)
  Receive Date: 20220221
  Receipt Date: 20220527
  Transmission Date: 20220721
  Serious: No
  Sender: FDA-Public Use
  Company Number: GB-BAUSCH-BL-2022-004943

PATIENT
  Age: 58 Year
  Sex: Male
  Weight: 104 kg

DRUGS (6)
  1. BRODALUMAB [Suspect]
     Active Substance: BRODALUMAB
     Indication: Psoriasis
     Dosage: DOSAGE : 210MG WEEK 0,1 AND 2 THEN EVERY TWO WEEKS
     Route: 058
     Dates: start: 20200310, end: 20210720
  2. SEASONAL FLU VACCINE [Concomitant]
     Indication: Product used for unknown indication
     Dates: start: 20201024, end: 20201024
  3. SEASONAL FLU VACCINE [Concomitant]
     Dates: start: 20211022, end: 20211022
  4. COVID-19 VACCINE (PFIZER/BIONTECH) [Concomitant]
     Indication: Product used for unknown indication
     Dates: start: 20210129, end: 20210129
  5. COVID-19 VACCINE (PFIZER/BIONTECH) [Concomitant]
     Dates: start: 20210401, end: 20210401
  6. COVID-19 VACCINE (PFIZER/BIONTECH) [Concomitant]
     Dates: start: 20211113, end: 20211113

REACTIONS (2)
  - COVID-19 [Recovered/Resolved]
  - Inappropriate schedule of product administration [Unknown]

NARRATIVE: CASE EVENT DATE: 20210720
